FAERS Safety Report 10021549 (Version 1)
Quarter: 2014Q1

REPORT INFORMATION
  Report Type: Spontaneous
  Country: US (occurrence: None)
  Receive Date: 20140318
  Receipt Date: 20140318
  Transmission Date: 20141002
  Serious: No
  Sender: FDA-Public Use
  Company Number: None

PATIENT
  Age: 79 Year
  Sex: Male
  Weight: 52.62 kg

DRUGS (1)
  1. AUGMENTIN 10MG [Suspect]
     Indication: SINUSITIS
     Dosage: 1 PILL, TWICE A DAY, TWICE DAILY, TAKEN UNDER THE TONGUE
     Route: 048
     Dates: start: 20140220, end: 20140221

REACTIONS (7)
  - Panic attack [None]
  - Confusional state [None]
  - Musculoskeletal disorder [None]
  - Dysstasia [None]
  - Dizziness [None]
  - Crying [None]
  - Palpitations [None]
